FAERS Safety Report 5849910-9 (Version None)
Quarter: 2008Q3

REPORT INFORMATION
  Report Type: 
  Country: None (occurrence: None)
  Receive Date: 20080819
  Receipt Date: 20080808
  Transmission Date: 20090109
  Serious: Yes (Hospitalization)
  Sender: FDA-Public Use
  Company Number: US-AMGEN-KDL300879

PATIENT

DRUGS (1)
  1. ARANESP [Suspect]
     Indication: ANAEMIA OF MALIGNANT DISEASE

REACTIONS (6)
  - ANOREXIA [None]
  - ASTHENIA [None]
  - DEHYDRATION [None]
  - HERPES OESOPHAGITIS [None]
  - LETHARGY [None]
  - OESOPHAGEAL HYPOMOTILITY [None]
